FAERS Safety Report 6964130-2 (Version None)
Quarter: 2010Q3

REPORT INFORMATION
  Report Type: 
  Country: None (occurrence: None)
  Receive Date: 20100903
  Receipt Date: 20100826
  Transmission Date: 20110219
  Serious: Yes (Other)
  Sender: FDA-Public Use
  Company Number: US-ASTRAZENECA-2009UW01225

PATIENT
  Age: 480 Month
  Sex: Male
  Weight: 127 kg

DRUGS (13)
  1. SEROQUEL [Suspect]
     Indication: ANXIETY
     Dosage: 25 TO 600 MG PER DAY
     Route: 048
     Dates: start: 20030201, end: 20031001
  2. SEROQUEL [Suspect]
     Indication: DEPRESSION
     Dosage: 25 TO 600 MG PER DAY
     Route: 048
     Dates: start: 20030201, end: 20031001
  3. SEROQUEL [Suspect]
     Indication: BIPOLAR DISORDER
     Dosage: 25 TO 600 MG PER DAY
     Route: 048
     Dates: start: 20030201, end: 20031001
  4. SEROQUEL [Suspect]
     Indication: SLEEP DISORDER
     Dosage: 25 TO 600 MG PER DAY
     Route: 048
     Dates: start: 20030201, end: 20031001
  5. SEROQUEL [Suspect]
     Dosage: 100 MG TO 400 MG
     Route: 048
     Dates: start: 20040429
  6. SEROQUEL [Suspect]
     Dosage: 100 MG TO 400 MG
     Route: 048
     Dates: start: 20040429
  7. SEROQUEL [Suspect]
     Dosage: 100 MG TO 400 MG
     Route: 048
     Dates: start: 20040429
  8. SEROQUEL [Suspect]
     Dosage: 100 MG TO 400 MG
     Route: 048
     Dates: start: 20040429
  9. SEROQUEL [Suspect]
     Dosage: 25 TO 600 MG PER DAY
     Route: 048
     Dates: start: 20050601, end: 20060601
  10. SEROQUEL [Suspect]
     Dosage: 25 TO 600 MG PER DAY
     Route: 048
     Dates: start: 20050601, end: 20060601
  11. SEROQUEL [Suspect]
     Dosage: 25 TO 600 MG PER DAY
     Route: 048
     Dates: start: 20050601, end: 20060601
  12. SEROQUEL [Suspect]
     Dosage: 25 TO 600 MG PER DAY
     Route: 048
     Dates: start: 20050601, end: 20060601
  13. WELLBUTRIN XL [Concomitant]
     Route: 048
     Dates: start: 20040422

REACTIONS (2)
  - NEUROPATHY PERIPHERAL [None]
  - TYPE 2 DIABETES MELLITUS [None]
